FAERS Safety Report 5724200-3 (Version None)
Quarter: 2008Q2

REPORT INFORMATION
  Report Type: 
  Country: None (occurrence: None)
  Receive Date: 20080430
  Receipt Date: 20080417
  Transmission Date: 20081010
  Serious: Yes (Other)
  Sender: FDA-Public Use
  Company Number: US-AMGEN-KDL243768

PATIENT
  Sex: Female
  Weight: 55.4 kg

DRUGS (1)
  1. ENBREL [Suspect]
     Indication: RHEUMATOID ARTHRITIS
     Route: 058
     Dates: start: 20040515

REACTIONS (11)
  - ARTHRALGIA [None]
  - BACK PAIN [None]
  - FATIGUE [None]
  - JOINT STIFFNESS [None]
  - JOINT SWELLING [None]
  - NECK PAIN [None]
  - RASH ERYTHEMATOUS [None]
  - RASH PRURITIC [None]
  - SCAR [None]
  - SINUSITIS [None]
  - SJOGREN'S SYNDROME [None]
